FAERS Safety Report 9587924 (Version 2)
Quarter: 2013Q4

REPORT INFORMATION
  Report Type: Spontaneous
  Country: JP (occurrence: JP)
  Receive Date: 20131003
  Receipt Date: 20131031
  Transmission Date: 20140711
  Serious: Yes (Other)
  Sender: FDA-Public Use
  Company Number: JP-BAXTER-2013BAX038305

PATIENT
  Age: 31 Year
  Sex: Female

DRUGS (10)
  1. SUPRANE [Suspect]
     Indication: MAINTENANCE OF ANAESTHESIA
  2. FENTANYL [Suspect]
     Indication: INDUCTION OF ANAESTHESIA
     Route: 065
  3. FENTANYL [Suspect]
     Indication: MAINTENANCE OF ANAESTHESIA
  4. REMIFENTANIL [Suspect]
     Indication: INDUCTION OF ANAESTHESIA
     Route: 065
  5. REMIFENTANIL [Suspect]
     Indication: MAINTENANCE OF ANAESTHESIA
  6. ROCURONIUM BROMIDE [Suspect]
     Indication: INDUCTION OF ANAESTHESIA
     Route: 065
  7. PROPOFOL [Suspect]
     Indication: INDUCTION OF ANAESTHESIA
     Route: 065
  8. PROPOFOL [Suspect]
     Indication: MAINTENANCE OF ANAESTHESIA
  9. PROPOFOL [Suspect]
     Indication: SEDATION
  10. SEVOFLURANE [Suspect]
     Indication: MAINTENANCE OF ANAESTHESIA
     Route: 065

REACTIONS (2)
  - Loss of consciousness [Recovered/Resolved]
  - Mental disorder [Recovered/Resolved]
